FAERS Safety Report 9465985 (Version 1)
Quarter: 2013Q3

REPORT INFORMATION
  Report Type: Spontaneous
  Country: GB (occurrence: GB)
  Receive Date: 20130820
  Receipt Date: 20130820
  Transmission Date: 20140515
  Serious: Yes (Hospitalization)
  Sender: FDA-Public Use
  Company Number: GB-ASTRAZENECA-2013SE62821

PATIENT
  Age: 49 Year
  Sex: Male

DRUGS (9)
  1. OMEPRAZOLE [Suspect]
     Route: 048
  2. METFORMIN [Suspect]
     Route: 048
  3. ASPIRIN [Suspect]
     Route: 065
  4. ACAMPROSATE [Suspect]
     Route: 065
  5. AMISULPRIDE [Suspect]
     Route: 065
  6. ATORVASTATIN [Suspect]
     Route: 065
  7. CITALOPRAM [Suspect]
     Route: 065
  8. ZAPONEX [Suspect]
     Route: 048
     Dates: start: 20110802, end: 201307
  9. ZAPONEX [Suspect]
     Route: 048

REACTIONS (3)
  - Overdose [Recovered/Resolved with Sequelae]
  - Cardiovascular disorder [Unknown]
  - Hypoventilation [Recovering/Resolving]
